FAERS Safety Report 4756411-8 (Version None)
Quarter: 2005Q3

REPORT INFORMATION
  Report Type: 
  Country: None (occurrence: None)
  Receive Date: 20050830
  Receipt Date: 20050616
  Transmission Date: 20060218
  Serious: Yes (Other)
  Sender: FDA-Public Use
  Company Number: US-GLAXOSMITHKLINE-A0563005A

PATIENT
  Age: 18 Year
  Sex: Female
  Weight: 47.7 kg

DRUGS (1)
  1. WELLBUTRIN [Suspect]
     Indication: DEPRESSION
     Route: 048
     Dates: start: 20050523, end: 20050531

REACTIONS (2)
  - AMNESIA [None]
  - GRAND MAL CONVULSION [None]
